FAERS Safety Report 10049410 (Version 2)
Quarter: 2014Q2

REPORT INFORMATION
  Report Type: Spontaneous
  Country: FR (occurrence: FR)
  Receive Date: 20140401
  Receipt Date: 20140401
  Transmission Date: 20141212
  Serious: Yes (Other)
  Sender: FDA-Public Use
  Company Number: FR-JNJFOC-20140106110

PATIENT
  Sex: Female

DRUGS (2)
  1. HALDOL [Suspect]
     Indication: PRODUCT USED FOR UNKNOWN INDICATION
     Route: 048
  2. LEPTICUR [Concomitant]
     Indication: DIZZINESS
     Dosage: 1/4 TABLET
     Route: 065

REACTIONS (2)
  - Arthralgia [Recovered/Resolved]
  - Hemiplegia [Unknown]
